FAERS Safety Report 4675208-0 (Version None)
Quarter: 2005Q2

REPORT INFORMATION
  Report Type: 
  Country: None (occurrence: None)
  Receive Date: 20050526
  Receipt Date: 20050513
  Transmission Date: 20051028
  Serious: Yes (Life-Threatening, Hospitalization)
  Sender: FDA-Public Use
  Company Number: 26635

PATIENT
  Age: 21 Year
  Sex: Female

DRUGS (1)
  1. FLECAINIDE ACETATE [Suspect]
     Dosage: 2800 MG (100 MG, 28 IN 1 DAY(S))
     Route: 048
     Dates: start: 20050513, end: 20050513

REACTIONS (6)
  - BLOOD POTASSIUM DECREASED [None]
  - BUNDLE BRANCH BLOCK LEFT [None]
  - CARDIOGENIC SHOCK [None]
  - INTENTIONAL MISUSE [None]
  - LOSS OF CONSCIOUSNESS [None]
  - OVERDOSE [None]
